FAERS Safety Report 24912594 (Version 2)
Quarter: 2025Q1

REPORT INFORMATION
  Report Type: Report from Study
  Country: JP (occurrence: JP)
  Receive Date: 20250131
  Receipt Date: 20250305
  Transmission Date: 20250409
  Serious: No
  Sender: SHIONOGI
  Company Number: JP-shionogi-202500001090

PATIENT
  Age: 77 Year
  Sex: Male

DRUGS (2)
  1. CEFIDEROCOL [Suspect]
     Active Substance: CEFIDEROCOL
     Indication: Pneumonia
     Route: 065
  2. CEFIDEROCOL [Suspect]
     Active Substance: CEFIDEROCOL
     Indication: Pneumonia

REACTIONS (1)
  - No adverse event [Unknown]
